FAERS Safety Report 10192688 (Version 1)
Quarter: 2014Q2

REPORT INFORMATION
  Report Type: Spontaneous
  Country: US (occurrence: US)
  Receive Date: 20140523
  Receipt Date: 20140523
  Transmission Date: 20141212
  Serious: No
  Sender: FDA-Public Use
  Company Number: US-TEVA-483619USA

PATIENT
  Age: 31 Year
  Sex: Female
  Weight: 61.29 kg

DRUGS (3)
  1. PARAGARD 380A [Suspect]
     Indication: CONTRACEPTION
     Route: 015
     Dates: start: 20140410, end: 20140515
  2. ACYCLOVIR [Concomitant]
     Indication: ORAL HERPES
  3. IBUPROFEN [Concomitant]
     Indication: DYSMENORRHOEA

REACTIONS (2)
  - Device expulsion [Recovered/Resolved]
  - Dysmenorrhoea [Not Recovered/Not Resolved]
